FAERS Safety Report 18404379 (Version 10)
Quarter: 2025Q1

REPORT INFORMATION
  Report Type: Report from Study
  Country: US (occurrence: US)
  Receive Date: 20201020
  Receipt Date: 20250113
  Transmission Date: 20250408
  Serious: No
  Sender: TAKEDA
  Company Number: US-SHIRE-US202034459

PATIENT
  Age: 32 Year
  Sex: Male

DRUGS (3)
  1. VELAGLUCERASE ALFA [Suspect]
     Active Substance: VELAGLUCERASE ALFA
     Indication: Gaucher^s disease
  2. VELAGLUCERASE ALFA [Suspect]
     Active Substance: VELAGLUCERASE ALFA
     Dosage: UNK UNK, 2/MONTH
     Dates: start: 20100507
  3. VELAGLUCERASE ALFA [Suspect]
     Active Substance: VELAGLUCERASE ALFA
     Dosage: UNK UNK, 2/MONTH

REACTIONS (7)
  - Amnesia [Unknown]
  - Bedridden [Unknown]
  - Illness [Recovered/Resolved]
  - Tremor [Not Recovered/Not Resolved]
  - Product dose omission issue [Unknown]
  - Arthralgia [Not Recovered/Not Resolved]
  - Paraesthesia [Recovering/Resolving]

NARRATIVE: CASE EVENT DATE: 20201011
